FAERS Safety Report 4300232-7 (Version None)
Quarter: 2004Q1

REPORT INFORMATION
  Report Type: 
  Country: None (occurrence: None)
  Receive Date: 20040218
  Receipt Date: 20040209
  Transmission Date: 20041129
  Serious: Yes (Life-Threatening, Hospitalization, Other)
  Sender: FDA-Public Use
  Company Number: STA-AE-04-MTX-058

PATIENT
  Age: 80 Year
  Sex: Male

DRUGS (11)
  1. METHOTREXATE [Suspect]
     Indication: RHEUMATOID ARTHRITIS
     Dosage: 10 MG 1X PER 1 WK, ORAL
     Route: 048
     Dates: start: 19930316, end: 19960814
  2. METHOTREXATE [Suspect]
     Indication: RHEUMATOID ARTHRITIS
     Dosage: 10 MG 1 X PER 1 WK, ORAL
     Route: 048
     Dates: start: 19961010, end: 19990308
  3. NEXIUM [Concomitant]
  4. MONOKET OD (ISOSORBIDE MONONITRATE) [Concomitant]
  5. RESCUVOLIN (CALCIUM FOLINATE) [Concomitant]
  6. DIOVAN [Concomitant]
  7. SELO-ZOK (METOPROLOL SUCCINATE) [Concomitant]
  8. ALBYL-E (ACETYLSALICYLIC ACID/MAGNESIUM OXIDE) [Concomitant]
  9. FOSAMAX [Concomitant]
  10. PREDNISOLONE [Concomitant]
  11. PRAVACHOL [Concomitant]

REACTIONS (6)
  - ANAEMIA [None]
  - BACTERIAL INFECTION [None]
  - C-REACTIVE PROTEIN INCREASED [None]
  - PANCYTOPENIA [None]
  - PETECHIAE [None]
  - THROMBOCYTOPENIA [None]
